FAERS Safety Report 20997128 (Version 2)
Quarter: 2022Q3

REPORT INFORMATION
  Report Type: Report from Study
  Country: US (occurrence: None)
  Receive Date: 20220623
  Receipt Date: 20220707
  Transmission Date: 20221027
  Serious: No
  Sender: FDA-Public Use
  Company Number: US-Merck Healthcare KGaA-9330555

PATIENT
  Age: 27 Year
  Sex: Female

DRUGS (1)
  1. MAVENCLAD [Suspect]
     Active Substance: CLADRIBINE
     Indication: Multiple sclerosis
     Dosage: YEAR ONE MONTH ONE THERAPY
     Route: 048
     Dates: start: 20220527

REACTIONS (8)
  - Acne [Recovering/Resolving]
  - Fatigue [Unknown]
  - Dizziness [Unknown]
  - Emotional disorder [Unknown]
  - Myalgia [Unknown]
  - Headache [Unknown]
  - Mobility decreased [Unknown]
  - Crying [Unknown]

NARRATIVE: CASE EVENT DATE: 20220101
